FAERS Safety Report 5309719-1 (Version None)
Quarter: 2007Q2

REPORT INFORMATION
  Report Type: 
  Country: None (occurrence: None)
  Receive Date: 20070427
  Receipt Date: 20061023
  Transmission Date: 20071010
  Serious: No
  Sender: FDA-Public Use
  Company Number: US-GLAXOSMITHKLINE-A0624568A

PATIENT
  Sex: Female

DRUGS (13)
  1. FENTANYL [Suspect]
     Indication: SURGERY
  2. ZOFRAN [Suspect]
     Indication: PRURITUS
  3. ELAVIL [Concomitant]
  4. KLONOPIN [Concomitant]
  5. TOPROL-XL [Concomitant]
  6. KLOR-CON [Concomitant]
  7. SKELAXIN [Concomitant]
  8. LYRICA [Concomitant]
  9. SYNTHROID [Concomitant]
  10. METHADONE HCL [Concomitant]
  11. PREMARIN [Concomitant]
  12. ULTRAM [Concomitant]
  13. DIAVAN [Concomitant]

REACTIONS (3)
  - CONDITION AGGRAVATED [None]
  - PARAESTHESIA [None]
  - PRURITUS [None]
